FAERS Safety Report 4373281-0 (Version None)
Quarter: 2004Q2

REPORT INFORMATION
  Report Type: 
  Country: None (occurrence: None)
  Receive Date: 20040608
  Receipt Date: 20040524
  Transmission Date: 20050107
  Serious: Yes (Hospitalization)
  Sender: FDA-Public Use
  Company Number: DE-GLAXOSMITHKLINE-D0043851A

PATIENT
  Age: 70 Year
  Sex: Female
  Weight: 54 kg

DRUGS (6)
  1. AVANDAMET [Suspect]
     Dosage: 502MG TWICE PER DAY
     Route: 048
     Dates: start: 20040119, end: 20040303
  2. AMARYL [Concomitant]
     Indication: DIABETES MELLITUS
     Route: 048
     Dates: start: 19990708
  3. L-THYROXIN [Concomitant]
     Route: 065
     Dates: start: 19980301
  4. ZOCOR [Concomitant]
     Route: 065
     Dates: start: 20010317, end: 20020314
  5. LOCOL [Concomitant]
     Route: 065
     Dates: start: 20020314
  6. ASPIRIN [Concomitant]
     Route: 065

REACTIONS (3)
  - ANGINA PECTORIS [None]
  - CHEST PAIN [None]
  - MYOCARDIAL INFARCTION [None]
